FAERS Safety Report 6213730-6 (Version None)
Quarter: 2009Q2

REPORT INFORMATION
  Report Type: 
  Country: None (occurrence: None)
  Receive Date: 20090602
  Receipt Date: 20090430
  Transmission Date: 20091009
  Serious: Yes (Other)
  Sender: FDA-Public Use
  Company Number: CHPA2009US12317

PATIENT
  Sex: Male
  Weight: 82.5 kg

DRUGS (2)
  1. MAALOX ANTACID/ANTIGAS MAX QDTABS ASST (NCH)(CALCIUM CARBONATE, SIMETH [Suspect]
     Indication: GASTROOESOPHAGEAL REFLUX DISEASE
     Dosage: 3-6 DF, DAILY, ORAL; MORE THAN 8 DF IN A DAY, ORAL
     Route: 048
     Dates: start: 20060101
  2. LIPITOR [Concomitant]

REACTIONS (5)
  - INTENTIONAL DRUG MISUSE [None]
  - OSTEOARTHRITIS [None]
  - OVERDOSE [None]
  - PRODUCT TASTE ABNORMAL [None]
  - PROSTATOMEGALY [None]
